FAERS Safety Report 6574488-4 (Version None)
Quarter: 2010Q1

REPORT INFORMATION
  Report Type: 
  Country: None (occurrence: None)
  Receive Date: 20100209
  Receipt Date: 20090917
  Transmission Date: 20100710
  Serious: No
  Sender: FDA-Public Use
  Company Number: A0808534A

PATIENT
  Age: 48 Year
  Sex: Female

DRUGS (2)
  1. PAXIL [Suspect]
     Route: 048
  2. WELLBUTRIN [Suspect]
     Route: 048

REACTIONS (3)
  - FEELING ABNORMAL [None]
  - MEDICATION ERROR [None]
  - WITHDRAWAL SYNDROME [None]
